FAERS Safety Report 19392034 (Version 3)
Quarter: 2021Q3

REPORT INFORMATION
  Report Type: Spontaneous
  Country: AR (occurrence: AR)
  Receive Date: 20210608
  Receipt Date: 20210726
  Transmission Date: 20211014
  Serious: Yes (Death, Hospitalization)
  Sender: FDA-Public Use
  Company Number: AR-PFIZER INC-2021606093

PATIENT
  Age: 63 Year
  Sex: Female

DRUGS (1)
  1. XELJANZ XR [Suspect]
     Active Substance: TOFACITINIB CITRATE
     Indication: RHEUMATOID ARTHRITIS
     Dosage: 11 MG, 1X/DAY
     Dates: start: 20210304, end: 2021

REACTIONS (2)
  - Malaise [Unknown]
  - Pneumonia [Fatal]

NARRATIVE: CASE EVENT DATE: 20210512
